FAERS Safety Report 17128680 (Version 1)
Quarter: 2019Q4

REPORT INFORMATION
  Report Type: Spontaneous
  Country: US (occurrence: US)
  Receive Date: 20191206
  Receipt Date: 20191206
  Transmission Date: 20200122
  Serious: No
  Sender: FDA-Public Use
  Company Number: None

PATIENT
  Age: 73 Year
  Sex: Female
  Weight: 48 kg

DRUGS (1)
  1. RITUXAN [Suspect]
     Active Substance: RITUXIMAB
     Indication: WALDENSTROM^S MACROGLOBULINAEMIA
     Dosage: ?          OTHER FREQUENCY:WEEKLY X4 2X/YR;?
     Route: 041
     Dates: start: 20180511

REACTIONS (5)
  - Erythema [None]
  - Oral pain [None]
  - Infusion related reaction [None]
  - Dental discomfort [None]
  - Sensory disturbance [None]

NARRATIVE: CASE EVENT DATE: 20191205
